FAERS Safety Report 5888705-7 (Version None)
Quarter: 2008Q3

REPORT INFORMATION
  Report Type: 
  Country: None (occurrence: None)
  Receive Date: 20080917
  Receipt Date: 20080903
  Transmission Date: 20090109
  Serious: Yes (Other)
  Sender: FDA-Public Use
  Company Number: IDA-00131

PATIENT
  Sex: 0

DRUGS (2)
  1. PROPRANOLOL [Suspect]
     Dosage: ORAL
     Route: 048
  2. CITALOPRAM [Suspect]
     Dosage: AMOUNT INGESTED- 200 MG, ORAL
     Route: 048

REACTIONS (1)
  - DRUG TOXICITY [None]
